FAERS Safety Report 6067634-2 (Version None)
Quarter: 2009Q1

REPORT INFORMATION
  Report Type: 
  Country: None (occurrence: None)
  Receive Date: 20090205
  Receipt Date: 20090203
  Transmission Date: 20090719
  Serious: Yes (Hospitalization)
  Sender: FDA-Public Use
  Company Number: US-B.I. PHARMACEUTICALS,INC./RIDGEFIELD-2005-BP-20217BP

PATIENT
  Sex: Female

DRUGS (3)
  1. CATAPRES-TTS-1 [Suspect]
     Indication: HYPERTENSION
     Dosage: .2MG
     Route: 061
     Dates: start: 20020101, end: 20020101
  2. CATAPRES-TTS-1 [Suspect]
     Route: 061
     Dates: end: 20000101
  3. CATAPRES-TTS-1 [Suspect]
     Route: 061

REACTIONS (7)
  - APPLICATION SITE RASH [None]
  - BLADDER PROLAPSE [None]
  - MENISCUS LESION [None]
  - NOCTURIA [None]
  - SLEEP DISORDER [None]
  - UTERINE LEIOMYOMA [None]
  - UTERINE PROLAPSE [None]
